FAERS Safety Report 4444604-9 (Version None)
Quarter: 2004Q3

REPORT INFORMATION
  Report Type: 
  Country: None (occurrence: None)
  Receive Date: 20040907
  Receipt Date: 20040826
  Transmission Date: 20050211
  Serious: Yes (Life-Threatening, Hospitalization, Disabling, Other)
  Sender: FDA-Public Use
  Company Number: 2004-08-1571

PATIENT
  Age: 55 Year
  Sex: Female

DRUGS (2)
  1. LORATADINE [Suspect]
     Indication: SEASONAL ALLERGY
     Dosage: 10MG ORAL
     Route: 048
     Dates: start: 20040501, end: 20040801
  2. MENOPHASE [Concomitant]

REACTIONS (2)
  - APLASTIC ANAEMIA [None]
  - BONE MARROW DEPRESSION [None]
